FAERS Safety Report 7760599-4 (Version None)
Quarter: 2011Q3

REPORT INFORMATION
  Report Type: 
  Country: None (occurrence: None)
  Receive Date: 20110919
  Receipt Date: 20110912
  Transmission Date: 20111222
  Serious: No
  Sender: FDA-Public Use
  Company Number: US-BAYER-2011-085770

PATIENT
  Sex: Female
  Weight: 81.633 kg

DRUGS (3)
  1. ALEVE (CAPLET) [Suspect]
     Indication: ANALGESIC THERAPY
     Dosage: 2 DF, Q4HR, BOTTLE COUNT 50S +50% BONUS
     Route: 048
  2. MELOXICAM [Concomitant]
  3. LISINOPRIL [Concomitant]

REACTIONS (1)
  - PAIN [None]
